FAERS Safety Report 8562769-4 (Version None)
Quarter: 2012Q3

REPORT INFORMATION
  Report Type: 
  Country: None (occurrence: None)
  Receive Date: 20120802
  Receipt Date: 20120717
  Transmission Date: 20120928
  Serious: No
  Sender: FDA-Public Use
  Company Number: US-AMGEN-USASP2011016851

PATIENT
  Age: 63 Year
  Sex: Female

DRUGS (2)
  1. ENBREL [Suspect]
     Indication: RHEUMATOID ARTHRITIS
     Dosage: 25 MG, 2 TIMES/WK
     Dates: start: 20000101
  2. PREDNISONE [Concomitant]
     Dosage: UNK

REACTIONS (4)
  - THERAPEUTIC RESPONSE DECREASED [None]
  - BUNION [None]
  - PAIN [None]
  - OSTEOARTHRITIS [None]
